FAERS Safety Report 13177802 (Version 1)
Quarter: 2017Q1

REPORT INFORMATION
  Report Type: Report from Study
  Country: US (occurrence: US)
  Receive Date: 20170201
  Receipt Date: 20170201
  Transmission Date: 20170428
  Serious: Yes (Other)
  Sender: FDA-Public Use
  Company Number: US-ROCHE-1884381

PATIENT

DRUGS (2)
  1. INC280 [Suspect]
     Active Substance: INVESTIGATIONAL PRODUCT
     Indication: GLIOBLASTOMA MULTIFORME
     Dosage: DOSE LEVEL (DL) 1 WAS 100MG BID DAILY; DL2 WAS 200MG BID DAILY AND DL3 WAS 400MG BID DAILY
     Route: 048
  2. BEVACIZUMAB [Suspect]
     Active Substance: BEVACIZUMAB
     Indication: GLIOBLASTOMA MULTIFORME
     Dosage: ON DAY 1 AND 15 OF 28-DAY CYCLES
     Route: 042

REACTIONS (1)
  - Alanine aminotransferase increased [Unknown]
